FAERS Safety Report 12670286 (Version 4)
Quarter: 2017Q3

REPORT INFORMATION
  Report Type: Report from Study
  Country: None (occurrence: BR)
  Receive Date: 20160821
  Receipt Date: 20170720
  Transmission Date: 20171127
  Serious: Yes (Other)
  Sender: FDA-Public Use
  Company Number: BR-ABBVIE-16K-020-1702595-00

PATIENT
  Sex: Female
  Weight: 57 kg

DRUGS (30)
  1. HUMIRA [Suspect]
     Active Substance: ADALIMUMAB
     Route: 058
  2. GLIFAGE [Concomitant]
     Active Substance: METFORMIN HYDROCHLORIDE
     Route: 048
     Dates: start: 2014
  3. CALCIUM CARBONATE. [Concomitant]
     Active Substance: CALCIUM CARBONATE
     Indication: CALCIUM METABOLISM DISORDER
     Route: 048
     Dates: start: 2001
  4. FLUOXETINE [Concomitant]
     Active Substance: FLUOXETINE HYDROCHLORIDE
     Indication: SLEEP DISORDER THERAPY
  5. HESPERIDIN [Concomitant]
     Active Substance: HESPERIDIN
     Indication: CARDIOVASCULAR DISORDER
     Route: 048
     Dates: start: 2012
  6. HUMIRA [Suspect]
     Active Substance: ADALIMUMAB
     Route: 058
  7. PRELONE [Concomitant]
     Active Substance: PREDNISOLONE
     Route: 048
     Dates: start: 1996
  8. GLIFAGE [Concomitant]
     Active Substance: METFORMIN HYDROCHLORIDE
     Indication: DIABETES MELLITUS
     Dosage: XTENDED RELEASE
     Route: 048
     Dates: start: 2015
  9. LEVOID [Concomitant]
     Active Substance: LEVOTHYROXINE
     Indication: THYROID DISORDER
     Route: 048
     Dates: start: 2010
  10. DIOSMIN [Concomitant]
     Active Substance: DIOSMIN
     Indication: CARDIOVASCULAR DISORDER
     Route: 048
     Dates: start: 2012
  11. LACTASE [Concomitant]
     Active Substance: LACTASE
     Indication: PRODUCT USED FOR UNKNOWN INDICATION
     Route: 048
     Dates: start: 2016
  12. ESOMEPRAZOLE [Concomitant]
     Active Substance: ESOMEPRAZOLE
     Indication: GASTRIC DISORDER
     Route: 048
  13. HUMIRA [Suspect]
     Active Substance: ADALIMUMAB
     Indication: RHEUMATOID ARTHRITIS
     Route: 058
     Dates: start: 20140128
  14. FLUOXETINE [Concomitant]
     Active Substance: FLUOXETINE HYDROCHLORIDE
     Indication: DEPRESSION
     Route: 048
     Dates: start: 2002
  15. PROLIA [Concomitant]
     Active Substance: DENOSUMAB
     Indication: OSTEOPOROSIS
     Route: 030
     Dates: start: 2015
  16. VITAMIN D3 [Concomitant]
     Active Substance: CHOLECALCIFEROL
     Indication: HYPOVITAMINOSIS
     Route: 048
  17. HUMIRA [Suspect]
     Active Substance: ADALIMUMAB
     Route: 058
  18. FLUOXETINE [Concomitant]
     Active Substance: FLUOXETINE HYDROCHLORIDE
     Indication: ANXIETY
  19. PANTOPRAZOLE [Concomitant]
     Active Substance: PANTOPRAZOLE
     Indication: GASTRIC DISORDER
     Route: 048
     Dates: start: 2001
  20. THEANINE [Concomitant]
     Active Substance: THEANINE
     Indication: CARDIOVASCULAR DISORDER
     Route: 048
     Dates: start: 2012
  21. PRELONE [Concomitant]
     Active Substance: PREDNISOLONE
     Indication: RHEUMATOID ARTHRITIS
     Route: 048
     Dates: start: 1995
  22. BEZAFIBRATE [Concomitant]
     Active Substance: BEZAFIBRATE
     Indication: BLOOD TRIGLYCERIDES
  23. CIMICIFUGA RACEMOSA [Concomitant]
     Indication: HOT FLUSH
  24. LEVOID [Concomitant]
     Active Substance: LEVOTHYROXINE
     Route: 048
     Dates: start: 2013
  25. BEZAFIBRATE [Concomitant]
     Active Substance: BEZAFIBRATE
     Indication: BLOOD TRIGLYCERIDES INCREASED
     Dosage: BEFORE 2015
     Route: 048
     Dates: start: 2013
  26. CALCIUM [Concomitant]
     Active Substance: CALCIUM
     Indication: PRODUCT USED FOR UNKNOWN INDICATION
     Route: 048
     Dates: start: 2001
  27. CALCIUM CARBONATE. [Concomitant]
     Active Substance: CALCIUM CARBONATE
     Route: 048
     Dates: start: 2002
  28. CIMICIFUGA RACEMOSA [Concomitant]
     Indication: MENOPAUSE
     Route: 048
     Dates: start: 2012
  29. PANTOPRAZOLE [Concomitant]
     Active Substance: PANTOPRAZOLE
     Indication: PROPHYLAXIS
  30. TYROSINE [Concomitant]
     Active Substance: TYROSINE
     Indication: CARDIOVASCULAR DISORDER
     Route: 048
     Dates: start: 2011

REACTIONS (8)
  - Bone pain [Recovered/Resolved]
  - Sciatic nerve neuropathy [Recovered/Resolved]
  - Hypoaesthesia [Recovered/Resolved]
  - Somnolence [Not Recovered/Not Resolved]
  - Osteoarthritis [Recovering/Resolving]
  - Nerve compression [Recovering/Resolving]
  - Intervertebral disc protrusion [Not Recovered/Not Resolved]
  - Bone erosion [Recovering/Resolving]

NARRATIVE: CASE EVENT DATE: 2014
